FAERS Safety Report 22654352 (Version 6)
Quarter: 2024Q1

REPORT INFORMATION
  Report Type: Report from Study
  Country: US (occurrence: US)
  Receive Date: 20230629
  Receipt Date: 20240108
  Transmission Date: 20240409
  Serious: No
  Sender: FDA-Public Use
  Company Number: US-002147023-NVSC2023US147453

PATIENT
  Sex: Female

DRUGS (1)
  1. KESIMPTA [Suspect]
     Active Substance: OFATUMUMAB
     Indication: Relapsing multiple sclerosis
     Dosage: UNK
     Route: 065
     Dates: start: 20230527

REACTIONS (6)
  - Fatigue [Unknown]
  - Somnolence [Unknown]
  - Swelling [Unknown]
  - Arthritis [Unknown]
  - Memory impairment [Unknown]
  - Inappropriate schedule of product administration [Unknown]
